FAERS Safety Report 5034736-9 (Version None)
Quarter: 2006Q2

REPORT INFORMATION
  Report Type: 
  Country: None (occurrence: None)
  Receive Date: 20060621
  Receipt Date: 20060613
  Transmission Date: 20061013
  Serious: Yes (Hospitalization, Other)
  Sender: FDA-Public Use
  Company Number: ESWYE412920FEB06

PATIENT
  Age: 69 Year
  Sex: Male

DRUGS (1)
  1. RAPAMUNE [Suspect]
     Indication: PROPHYLAXIS AGAINST TRANSPLANT REJECTION
     Dosage: 3 MG 1X PER 1 DAY
     Route: 048
     Dates: start: 20031027

REACTIONS (3)
  - GENERALISED OEDEMA [None]
  - RENAL IMPAIRMENT [None]
  - TRANSPLANT REJECTION [None]
